FAERS Safety Report 10073277 (Version 1)
Quarter: 2014Q2

REPORT INFORMATION
  Report Type: Report from Study
  Country: GB (occurrence: GB)
  Receive Date: 20140411
  Receipt Date: 20140411
  Transmission Date: 20141212
  Serious: Yes (Death)
  Sender: FDA-Public Use
  Company Number: GB-CELGENEUS-167-21880-14040097

PATIENT
  Age: 71 Year
  Sex: Male
  Weight: 95 kg

DRUGS (20)
  1. REVLIMID [Suspect]
     Indication: PLASMA CELL MYELOMA
     Dosage: 10 MILLIGRAM
     Route: 048
     Dates: start: 20110805, end: 20110828
  2. REVLIMID [Suspect]
     Dosage: 10 MILLIGRAM
     Route: 048
     Dates: start: 20110830, end: 20110920
  3. REVLIMID [Suspect]
     Dosage: 15 MILLIGRAM
     Route: 048
     Dates: start: 20110927, end: 20111018
  4. REVLIMID [Suspect]
     Dosage: 15 MILLIGRAM
     Route: 048
     Dates: start: 20111027, end: 20111117
  5. REVLIMID [Suspect]
     Dosage: 10 MILLIGRAM
     Route: 048
     Dates: start: 20110705, end: 20110725
  6. REVLIMID [Suspect]
     Dosage: 15 MILLIGRAM
     Route: 048
     Dates: start: 20111222, end: 20120111
  7. REVLIMID [Suspect]
     Dosage: 15 MILLIGRAM
     Route: 048
     Dates: start: 20120427, end: 20120516
  8. REVLIMID [Suspect]
     Dosage: 15 MILLIGRAM
     Route: 048
     Dates: start: 20120606, end: 20120625
  9. REVLIMID [Suspect]
     Dosage: 15 MILLIGRAM
     Route: 048
     Dates: start: 20120808, end: 20120829
  10. REVLIMID [Suspect]
     Dosage: 15 MILLIGRAM
     Route: 048
     Dates: start: 20120905, end: 20120925
  11. REVLIMID [Suspect]
     Route: 048
     Dates: start: 20121010, end: 20121101
  12. REVLIMID [Suspect]
     Route: 048
     Dates: start: 20121107, end: 20121130
  13. DEXAMETHASONE [Suspect]
     Indication: PLASMA CELL MYELOMA
     Route: 065
     Dates: start: 200711, end: 200804
  14. DEXAMETHASONE [Suspect]
     Route: 048
  15. DEXAMETHASONE [Suspect]
     Route: 048
     Dates: start: 20110830, end: 20110904
  16. DEXAMETHASONE [Suspect]
     Route: 048
     Dates: start: 20110927, end: 20111001
  17. DEXAMETHASONE [Suspect]
     Route: 048
     Dates: start: 20110805, end: 20110808
  18. DEXAMETHASONE [Suspect]
     Route: 048
     Dates: start: 20111025, end: 20111028
  19. ASPIRINE [Concomitant]
     Indication: CEREBROVASCULAR DISORDER
     Route: 065
  20. WARFARIN [Concomitant]
     Indication: PULMONARY EMBOLISM
     Route: 065

REACTIONS (2)
  - Renal failure acute [Fatal]
  - Pulmonary embolism [Fatal]
